FAERS Safety Report 11106249 (Version 1)
Quarter: 2015Q2

REPORT INFORMATION
  Report Type: Spontaneous
  Country: US (occurrence: None)
  Receive Date: 20150511
  Receipt Date: 20150511
  Transmission Date: 20150821
  Serious: No
  Sender: FDA-Public Use
  Company Number: None

PATIENT
  Age: 64 Year
  Sex: Male

DRUGS (1)
  1. VIVITROL [Suspect]
     Active Substance: NALTREXONE
     Indication: ALCOHOLISM
     Dosage: 380MG, EVERY 4 WEEKS, INTRAMUSCULAR?USED ONCE
     Route: 030

REACTIONS (1)
  - Injection site vesicles [None]

NARRATIVE: CASE EVENT DATE: 20150320
